FAERS Safety Report 10661137 (Version 2)
Quarter: 2015Q1

REPORT INFORMATION
  Report Type: Report from Study
  Country: CZ (occurrence: CZ)
  Receive Date: 20141218
  Receipt Date: 20150112
  Transmission Date: 20150720
  Serious: Yes (Hospitalization)
  Sender: FDA-Public Use
  Company Number: CZ-BIOGENIDEC-2014BI130566

PATIENT
  Age: 22 Year
  Sex: Female

DRUGS (4)
  1. VENTOLIN N [Concomitant]
     Indication: ASTHMA
     Route: 055
     Dates: start: 20131027
  2. SERETIDE DISCUS 50/500 [Concomitant]
     Indication: ASTHMA
     Route: 055
     Dates: start: 20131027
  3. TYSABRI [Suspect]
     Active Substance: NATALIZUMAB
     Indication: RELAPSING-REMITTING MULTIPLE SCLEROSIS
     Route: 042
     Dates: start: 20140529
  4. KETOTIFEN [Concomitant]
     Active Substance: KETOTIFEN
     Indication: ASTHMA
     Route: 048
     Dates: start: 20131027

REACTIONS (1)
  - Asthma [Recovered/Resolved]

NARRATIVE: CASE EVENT DATE: 20141030
